FAERS Safety Report 5361221-7 (Version None)
Quarter: 2007Q2

REPORT INFORMATION
  Report Type: 
  Country: None (occurrence: None)
  Receive Date: 20070530
  Receipt Date: 20070115
  Transmission Date: 20071010
  Serious: No
  Sender: FDA-Public Use
  Company Number: 2006PV026455

PATIENT
  Age: 74 Year
  Sex: Male
  Weight: 82.5547 kg

DRUGS (6)
  1. BYETTA [Suspect]
     Indication: DIABETES MELLITUS NON-INSULIN-DEPENDENT
     Dosage: 5;10 MCG;BID;SC
     Route: 058
     Dates: start: 20061126, end: 20061227
  2. BYETTA [Suspect]
     Indication: DIABETES MELLITUS NON-INSULIN-DEPENDENT
     Dosage: 5;10 MCG;BID;SC
     Route: 058
     Dates: start: 20061228
  3. ACTOS [Concomitant]
  4. NEXIUM [Concomitant]
  5. ZANTAC [Concomitant]
  6. TUMS [Concomitant]

REACTIONS (5)
  - DECREASED APPETITE [None]
  - GASTROOESOPHAGEAL REFLUX DISEASE [None]
  - INJECTION SITE HAEMORRHAGE [None]
  - NAUSEA [None]
  - WEIGHT DECREASED [None]
